FAERS Safety Report 16263098 (Version 1)
Quarter: 2019Q2

REPORT INFORMATION
  Report Type: Spontaneous
  Country: US (occurrence: US)
  Receive Date: 20190502
  Receipt Date: 20190502
  Transmission Date: 20190711
  Serious: Yes (Hospitalization)
  Sender: FDA-Public Use
  Company Number: US-GW PHARMA-201904USGW1229

PATIENT

DRUGS (1)
  1. EPIDIOLEX [Suspect]
     Active Substance: CANNABIDIOL
     Indication: EPILEPSY
     Dosage: 125 MILLIGRAM, BID
     Route: 048

REACTIONS (2)
  - Product supply issue [Unknown]
  - Seizure [Unknown]

NARRATIVE: CASE EVENT DATE: 201904
